FAERS Safety Report 4641134-6 (Version None)
Quarter: 2005Q2

REPORT INFORMATION
  Report Type: 
  Country: None (occurrence: None)
  Receive Date: 20050419
  Receipt Date: 20050419
  Transmission Date: 20051028
  Serious: Yes (Other)
  Sender: FDA-Public Use
  Company Number: None

PATIENT
  Sex: Female
  Weight: 63.05 kg

DRUGS (6)
  1. LEVAQUIN [Suspect]
     Indication: ASTHMA
     Dosage: 750MG ONCE DAILY ORALLY
     Route: 048
     Dates: start: 20050330, end: 20050330
  2. ASPIRIN [Concomitant]
  3. ACTONEL [Concomitant]
  4. PREDNISONE [Concomitant]
  5. CALCIUM GLUCONATE [Concomitant]
  6. M.V.I. [Concomitant]

REACTIONS (5)
  - ANXIETY [None]
  - ASTHENIA [None]
  - CONFUSIONAL STATE [None]
  - DIZZINESS [None]
  - DYSPNOEA [None]
